FAERS Safety Report 5971067-4 (Version None)
Quarter: 2008Q4

REPORT INFORMATION
  Report Type: 
  Country: None (occurrence: None)
  Receive Date: 20081128
  Receipt Date: 20081119
  Transmission Date: 20090506
  Serious: Yes (Death, Hospitalization, Other)
  Sender: FDA-Public Use
  Company Number: US-BAYER-200825137NA

PATIENT
  Age: 51 Year
  Sex: Male
  Weight: 82 kg

DRUGS (3)
  1. BETASERON [Suspect]
     Indication: MULTIPLE SCLEROSIS
     Dosage: TOTAL DAILY DOSE: 8 MIU
     Route: 058
     Dates: start: 20080426
  2. BETASERON [Suspect]
     Dosage: TOTAL DAILY DOSE: 8 MIU
     Route: 058
     Dates: start: 20080501
  3. BETASERON [Suspect]
     Route: 058
     Dates: start: 19960101, end: 19980101

REACTIONS (23)
  - ABASIA [None]
  - APATHY [None]
  - ASTHENIA [None]
  - BALANCE DISORDER [None]
  - CLUMSINESS [None]
  - CONFUSIONAL STATE [None]
  - CONTUSION [None]
  - DEMENTIA [None]
  - FAECAL INCONTINENCE [None]
  - FALL [None]
  - GAIT DISTURBANCE [None]
  - IMPAIRED SELF-CARE [None]
  - LOWER RESPIRATORY TRACT INFECTION VIRAL [None]
  - MOBILITY DECREASED [None]
  - MULTIPLE SCLEROSIS [None]
  - MUSCULAR WEAKNESS [None]
  - PNEUMONIA [None]
  - RIB FRACTURE [None]
  - SENSORY LOSS [None]
  - THROAT TIGHTNESS [None]
  - TREMOR [None]
  - WEIGHT DECREASED [None]
  - WRIST FRACTURE [None]
